FAERS Safety Report 25358033 (Version 2)
Quarter: 2025Q3

REPORT INFORMATION
  Report Type: Report from Study
  Country: US (occurrence: US)
  Receive Date: 20250526
  Receipt Date: 20250701
  Transmission Date: 20251021
  Serious: Yes (Hospitalization, Other)
  Sender: SANOFI AVENTIS
  Company Number: US-SA-2025SA148538

PATIENT
  Age: 71 Year
  Sex: Female
  Weight: 71.36 kg

DRUGS (1)
  1. ELIGLUSTAT [Suspect]
     Active Substance: ELIGLUSTAT
     Indication: Gaucher^s disease
     Dosage: 84 MG, BID
     Route: 048
     Dates: start: 202105

REACTIONS (4)
  - Pneumonia [Unknown]
  - Chest pain [Unknown]
  - Pneumonitis [Recovering/Resolving]
  - Weight abnormal [Unknown]

NARRATIVE: CASE EVENT DATE: 20250101
